FAERS Safety Report 6140791-5 (Version None)
Quarter: 2009Q2

REPORT INFORMATION
  Report Type: 
  Country: None (occurrence: None)
  Receive Date: 20090402
  Receipt Date: 20090325
  Transmission Date: 20091009
  Serious: Yes (Hospitalization, Other)
  Sender: FDA-Public Use
  Company Number: BE-BAYER-200917315GPV

PATIENT

DRUGS (2)
  1. NEXAVAR [Suspect]
     Indication: DRUG USE FOR UNKNOWN INDICATION
     Route: 048
  2. NEXAVAR [Suspect]
     Route: 048

REACTIONS (5)
  - EATING DISORDER [None]
  - INSOMNIA [None]
  - MALAISE [None]
  - THROMBOCYTOPENIA [None]
  - VARICES OESOPHAGEAL [None]
